FAERS Safety Report 7674784-3 (Version None)
Quarter: 2011Q3

REPORT INFORMATION
  Report Type: 
  Country: None (occurrence: None)
  Receive Date: 20110810
  Receipt Date: 20110803
  Transmission Date: 20111222
  Serious: Yes (Life-Threatening, Hospitalization)
  Sender: FDA-Public Use
  Company Number: GB-GLAXOSMITHKLINE-B0736737A

PATIENT
  Age: 21 Year
  Sex: Female

DRUGS (6)
  1. MOMETASONE FUROATE [Concomitant]
     Indication: SEASONAL ALLERGY
     Route: 045
  2. HYOSCINE HBR HYT [Concomitant]
     Indication: POLYCYSTIC OVARIES
     Route: 048
     Dates: start: 20110714
  3. DICLOFENAC SODIUM [Concomitant]
     Indication: POLYCYSTIC OVARIES
     Route: 048
  4. TOPIRAMATE [Concomitant]
     Indication: EPILEPSY
     Dosage: 25MG PER DAY
     Route: 048
     Dates: end: 20110714
  5. ALBUTEROL [Suspect]
     Indication: ASTHMA
     Route: 055
     Dates: start: 20110712, end: 20110713
  6. TRAMADOL HCL [Concomitant]
     Indication: POLYCYSTIC OVARIES
     Route: 048

REACTIONS (1)
  - ANAPHYLACTIC REACTION [None]
